FAERS Safety Report 11088654 (Version 1)
Quarter: 2015Q2

REPORT INFORMATION
  Report Type: Report from Study
  Country: US (occurrence: US)
  Receive Date: 20150504
  Receipt Date: 20150504
  Transmission Date: 20150821
  Serious: Yes (Other)
  Sender: FDA-Public Use
  Company Number: US-ACTELION-A-US2015-117456

PATIENT
  Age: 81 Year
  Sex: Female

DRUGS (1)
  1. TRACLEER [Suspect]
     Active Substance: BOSENTAN\BOSENTAN MONOHYDRATE
     Indication: PULMONARY ARTERIAL HYPERTENSION
     Dosage: UNK
     Route: 048

REACTIONS (8)
  - Arrhythmia [Unknown]
  - Dizziness [Unknown]
  - Histamine intolerance [Unknown]
  - Back injury [Unknown]
  - Feeling abnormal [Unknown]
  - Contusion [Unknown]
  - Headache [Unknown]
  - Loss of consciousness [Unknown]
